FAERS Safety Report 5370784-7 (Version None)
Quarter: 2007Q2

REPORT INFORMATION
  Report Type: 
  Country: None (occurrence: None)
  Receive Date: 20070626
  Receipt Date: 20070621
  Transmission Date: 20071010
  Serious: Yes (Hospitalization)
  Sender: FDA-Public Use
  Company Number: B0472713A

PATIENT
  Age: 71 Year
  Sex: Female
  Weight: 51 kg

DRUGS (3)
  1. VALTREX [Suspect]
     Indication: HERPES ZOSTER
     Dosage: 2G TWICE PER DAY
     Route: 048
     Dates: start: 20070521, end: 20070521
  2. LOXONIN [Suspect]
     Indication: DRUG USE FOR UNKNOWN INDICATION
     Dosage: 60MG THREE TIMES PER DAY
     Route: 048
     Dates: start: 20070521, end: 20070521
  3. SELBEX [Suspect]
     Indication: GASTRITIS
     Dosage: 50MG THREE TIMES PER DAY
     Route: 048
     Dates: start: 20070521, end: 20070521

REACTIONS (5)
  - ANAPHYLACTIC SHOCK [None]
  - BLOOD PRESSURE DECREASED [None]
  - DIZZINESS [None]
  - DRUG ERUPTION [None]
  - VOMITING [None]
